FAERS Safety Report 5658235-6 (Version None)
Quarter: 2008Q1

REPORT INFORMATION
  Report Type: 
  Country: None (occurrence: None)
  Receive Date: 20080310
  Receipt Date: 20070117
  Transmission Date: 20080703
  Serious: No
  Sender: FDA-Public Use
  Company Number: US-BAYER-200710199BCC

PATIENT
  Age: 80 Year
  Sex: Female
  Weight: 36 kg

DRUGS (2)
  1. ALEVE [Suspect]
     Indication: BACK PAIN
     Dosage: UNIT DOSE: 220 MG
     Route: 048
     Dates: start: 20070101
  2. TYLENOL (CAPLET) [Suspect]
     Indication: BACK PAIN

REACTIONS (1)
  - CONSTIPATION [None]
